FAERS Safety Report 5674729-1 (Version None)
Quarter: 2008Q1

REPORT INFORMATION
  Report Type: 
  Country: None (occurrence: None)
  Receive Date: 20080319
  Receipt Date: 20080319
  Transmission Date: 20080703
  Serious: Yes (Other)
  Sender: FDA-Public Use
  Company Number: None

PATIENT
  Age: 72 Year
  Sex: Male
  Weight: 73.4827 kg

DRUGS (1)
  1. ADVAIR HFA [Suspect]
     Indication: RESPIRATORY DISORDER
     Dosage: SPRAY INHALER 3 TIMES PER DAY NASAL
     Route: 045
     Dates: start: 20071127, end: 20080310

REACTIONS (5)
  - CONDITION AGGRAVATED [None]
  - DRUG INEFFECTIVE [None]
  - MALAISE [None]
  - PNEUMONIA [None]
  - RESPIRATORY DISORDER [None]
